FAERS Safety Report 12278740 (Version 2)
Quarter: 2016Q2

REPORT INFORMATION
  Report Type: Spontaneous
  Country: AR (occurrence: AR)
  Receive Date: 20160418
  Receipt Date: 20160422
  Transmission Date: 20160815
  Serious: Yes (Hospitalization)
  Sender: FDA-Public Use
  Company Number: AR-ASTRAZENECA-2016SE39452

PATIENT
  Age: 82 Year
  Sex: Female

DRUGS (8)
  1. ASPIRIN. [Concomitant]
     Active Substance: ASPIRIN
     Indication: PLATELET AGGREGATION
     Route: 048
     Dates: start: 20150301
  2. ROSUVASTATIN. [Concomitant]
     Active Substance: ROSUVASTATIN
     Indication: BLOOD CHOLESTEROL ABNORMAL
     Route: 048
     Dates: start: 20150301
  3. DIAMICRON MR [Concomitant]
     Active Substance: GLICLAZIDE
     Indication: HYPOGLYCAEMIA
     Route: 048
     Dates: start: 20150301
  4. OMEPRAZOLE. [Concomitant]
     Active Substance: OMEPRAZOLE
     Indication: GASTRIC DISORDER
     Route: 048
     Dates: start: 20150301
  5. EXFORGE [Concomitant]
     Active Substance: AMLODIPINE BESYLATE\VALSARTAN
     Indication: HYPERTENSION
     Dosage: 5/160MG, DAILY
     Route: 048
     Dates: start: 20150301
  6. TICAGRELOR [Concomitant]
     Active Substance: TICAGRELOR
     Indication: PLATELET AGGREGATION
     Dosage: EVERY DAY
     Route: 048
     Dates: start: 20150301
  7. KOMBIGLYZE XR [Suspect]
     Active Substance: METFORMIN HYDROCHLORIDE\SAXAGLIPTIN HYDROCHLORIDE
     Indication: HYPOGLYCAEMIA
     Dosage: 5/1000MG, DAILY
     Route: 048
     Dates: start: 20160314
  8. BISOPROLOL [Concomitant]
     Active Substance: BISOPROLOL
     Indication: HYPERTENSION
     Route: 048
     Dates: start: 20150301

REACTIONS (1)
  - Pancreatitis [Unknown]

NARRATIVE: CASE EVENT DATE: 20160407
